FAERS Safety Report 4325008-6 (Version None)
Quarter: 2004Q1

REPORT INFORMATION
  Report Type: 
  Country: None (occurrence: None)
  Receive Date: 20040326
  Receipt Date: 20030905
  Transmission Date: 20041129
  Serious: Yes (Hospitalization)
  Sender: FDA-Public Use
  Company Number: DE-ROCHE-346255

PATIENT
  Age: 40 Year
  Sex: Male
  Weight: 87.5 kg

DRUGS (33)
  1. DACLIZUMAB [Suspect]
     Dosage: 1 MG/KG WAS REPORTED AS THE DOSE.
     Route: 042
     Dates: start: 20030731, end: 20030731
  2. DACLIZUMAB [Suspect]
     Dosage: FOR A TOTAL OF 4 DOSES.
     Route: 042
     Dates: start: 20030813
  3. MYCOPHENOLATE MOFETIL [Suspect]
     Route: 048
     Dates: start: 20030731, end: 20030821
  4. MYCOPHENOLATE MOFETIL [Suspect]
     Route: 048
     Dates: start: 20030822, end: 20030903
  5. MYCOPHENOLATE MOFETIL [Suspect]
     Route: 048
     Dates: start: 20030916
  6. TACROLIMUS [Suspect]
     Route: 048
     Dates: start: 20030731, end: 20030731
  7. TACROLIMUS [Suspect]
     Route: 048
     Dates: start: 20030801, end: 20030807
  8. TACROLIMUS [Suspect]
     Route: 048
     Dates: start: 20030808, end: 20030810
  9. TACROLIMUS [Suspect]
     Route: 048
     Dates: start: 20030811
  10. PREDNISOLONE [Suspect]
     Route: 048
     Dates: start: 20030731
  11. PREDNISOLONE [Suspect]
     Route: 048
     Dates: start: 20030801, end: 20030801
  12. PREDNISOLONE [Suspect]
     Route: 048
     Dates: start: 20030802, end: 20030802
  13. PREDNISOLONE [Suspect]
     Route: 048
     Dates: start: 20030803, end: 20030803
  14. PREDNISOLONE [Suspect]
     Route: 048
     Dates: start: 20030804, end: 20030804
  15. PREDNISOLONE [Suspect]
     Route: 048
     Dates: start: 20030805, end: 20030805
  16. PREDNISOLONE [Suspect]
     Route: 048
     Dates: start: 20030806, end: 20030806
  17. PREDNISOLONE [Suspect]
     Route: 048
     Dates: start: 20030807, end: 20030807
  18. PREDNISOLONE [Suspect]
     Route: 048
     Dates: start: 20030808, end: 20030808
  19. PREDNISOLONE [Suspect]
     Route: 048
     Dates: start: 20030809, end: 20030809
  20. PREDNISOLONE [Suspect]
     Route: 048
     Dates: start: 20030810, end: 20030810
  21. PREDNISOLONE [Suspect]
     Route: 048
     Dates: start: 20030811, end: 20030811
  22. PREDNISOLONE [Suspect]
     Route: 048
     Dates: start: 20030812, end: 20030812
  23. PREDNISOLONE [Suspect]
     Route: 048
     Dates: start: 20030813, end: 20030813
  24. PREDNISOLONE [Suspect]
     Route: 048
     Dates: start: 20030814, end: 20030814
  25. PREDNISOLONE [Suspect]
     Route: 048
     Dates: start: 20030815, end: 20030815
  26. PREDNISOLONE [Suspect]
     Route: 048
     Dates: start: 20030816, end: 20030816
  27. PREDNISOLONE [Suspect]
     Route: 048
     Dates: start: 20030817, end: 20030817
  28. PREDNISOLONE [Suspect]
     Route: 048
     Dates: start: 20030818
  29. BISOPROLOL [Concomitant]
     Route: 048
     Dates: start: 20030802
  30. FELODIPINE [Concomitant]
     Route: 048
     Dates: start: 20030804
  31. LOPINAVIR [Concomitant]
     Route: 048
     Dates: start: 20030807
  32. PANTOZOL [Concomitant]
     Route: 048
     Dates: start: 20030731
  33. ASPIRIN [Concomitant]
     Route: 048
     Dates: start: 20030801

REACTIONS (2)
  - PNEUMONIA [None]
  - PNEUMONIA BACTERIAL [None]
